FAERS Safety Report 6054773-5 (Version None)
Quarter: 2009Q1

REPORT INFORMATION
  Report Type: 
  Country: None (occurrence: None)
  Receive Date: 20090128
  Receipt Date: 20090128
  Transmission Date: 20090719
  Serious: Yes (Other)
  Sender: FDA-Public Use
  Company Number: US-PFIZER INC-2008081292

PATIENT
  Sex: Female
  Weight: 81 kg

DRUGS (2)
  1. DEPO-PROVERA [Suspect]
     Indication: CONTRACEPTION
     Dosage: 150 MG, CYCLIC
     Route: 030
     Dates: start: 20000101, end: 20040101
  2. LORATADINE [Suspect]

REACTIONS (6)
  - BREAST CANCER [None]
  - CYST [None]
  - INAPPROPRIATE SCHEDULE OF DRUG ADMINISTRATION [None]
  - IRRITABLE BOWEL SYNDROME [None]
  - THYROID DISORDER [None]
  - WEIGHT INCREASED [None]
